FAERS Safety Report 8801332 (Version 2)
Quarter: 2013Q2

REPORT INFORMATION
  Report Type: Spontaneous
  Country: US (occurrence: US)
  Receive Date: 20120920
  Receipt Date: 20130503
  Transmission Date: 20140414
  Serious: Yes (Hospitalization)
  Sender: FDA-Public Use
  Company Number: US-UCBSA-066219

PATIENT
  Age: 63 Year
  Sex: Female

DRUGS (10)
  1. CIMZIA [Suspect]
     Indication: RHEUMATOID ARTHRITIS
     Dosage: 400 MG
     Route: 058
     Dates: start: 20120907, end: 201209
  2. METHOTREXATE [Concomitant]
     Dosage: 2.5 MG 6 TABS WEEK
     Dates: start: 201207
  3. PLAQUENIL [Concomitant]
     Dates: start: 201207
  4. SULFASALAZINE [Concomitant]
     Dosage: FOR 4 YEAR
  5. FORTEO [Concomitant]
     Route: 058
  6. LYRICA [Concomitant]
  7. MS CONTIN [Concomitant]
     Indication: PAIN
     Dosage: 45 MG TWICE DAILY AND 30 MG AT BED TIME
  8. MS [Concomitant]
     Indication: PAIN
     Dosage: 15 MG IMMEDIATE RELEASE AS NEEDED
  9. TIZANIDINE [Concomitant]
     Indication: MUSCLE RELAXANT THERAPY
  10. CELEBREX [Concomitant]

REACTIONS (10)
  - Muscle twitching [Recovered/Resolved]
  - Swollen tongue [Recovered/Resolved]
  - Dyspnoea [Unknown]
  - Arthralgia [Recovered/Resolved]
  - Urticaria [Recovered/Resolved]
  - Hypersensitivity [Recovered/Resolved]
  - White blood cell count increased [Recovered/Resolved]
  - Confusional state [Recovered/Resolved]
  - Muscular weakness [Unknown]
  - Ocular hyperaemia [Recovered/Resolved]
